FAERS Safety Report 24927948 (Version 1)
Quarter: 2025Q1

REPORT INFORMATION
  Report Type: Spontaneous
  Country: KR (occurrence: KR)
  Receive Date: 20250205
  Receipt Date: 20250205
  Transmission Date: 20250409
  Serious: Yes (Life-Threatening, Other)
  Sender: PFIZER
  Company Number: KR-PFIZER INC-PV202500013598

PATIENT
  Age: 5 Decade
  Sex: Male

DRUGS (2)
  1. DEXMEDETOMIDINE HYDROCHLORIDE [Suspect]
     Active Substance: DEXMEDETOMIDINE HYDROCHLORIDE
     Indication: Sedation
  2. REMIFENTANIL [Concomitant]
     Active Substance: REMIFENTANIL
     Indication: Sedation

REACTIONS (1)
  - Hypothermia [Recovered/Resolved]
